FAERS Safety Report 6603068-7 (Version None)
Quarter: 2010Q1

REPORT INFORMATION
  Report Type: 
  Country: None (occurrence: None)
  Receive Date: 20100226
  Receipt Date: 20100216
  Transmission Date: 20100710
  Serious: Yes (Hospitalization)
  Sender: FDA-Public Use
  Company Number: PHHY2010TR09428

PATIENT
  Age: 51 Year
  Sex: Female

DRUGS (3)
  1. DICLOFENAC SODIUM [Suspect]
     Indication: BACK PAIN
     Dosage: 10 DOSES OVER 5 DAYS
     Route: 030
  2. TENOXICAM [Suspect]
     Indication: BACK PAIN
     Dosage: 10 DOSES OVER 5 DAYS
     Route: 030
  3. THIOCOLCHICOSIDE [Suspect]
     Indication: BACK PAIN
     Dosage: 10 DOSES OVER 5 DAY
     Route: 030

REACTIONS (18)
  - BODY TEMPERATURE INCREASED [None]
  - C-REACTIVE PROTEIN INCREASED [None]
  - EXTRADURAL ABSCESS [None]
  - FEELING HOT [None]
  - GAIT DISTURBANCE [None]
  - HYPERAEMIA [None]
  - INDURATION [None]
  - INJECTION SITE ABSCESS [None]
  - INTERVERTEBRAL DISC OPERATION [None]
  - INTERVERTEBRAL DISCITIS [None]
  - LASEGUE'S TEST POSITIVE [None]
  - MONOPARESIS [None]
  - PAIN IN EXTREMITY [None]
  - PSOAS ABSCESS [None]
  - RED BLOOD CELL SEDIMENTATION RATE INCREASED [None]
  - SPINAL LAMINECTOMY [None]
  - STAPHYLOCOCCAL ABSCESS [None]
  - TENDERNESS [None]
